FAERS Safety Report 6856627-0 (Version None)
Quarter: 2010Q3

REPORT INFORMATION
  Report Type: 
  Country: None (occurrence: None)
  Receive Date: 20100719
  Receipt Date: 20100602
  Transmission Date: 20110219
  Serious: Yes (Hospitalization, Other)
  Sender: FDA-Public Use
  Company Number: US-BAYER-201032237GPV

PATIENT
  Age: 64 Year
  Sex: Male

DRUGS (7)
  1. CAMPATH [Suspect]
     Indication: LUNG TRANSPLANT
     Dosage: INTRAOPERATIVELY
  2. TACROLIMUS [Concomitant]
     Indication: LUNG TRANSPLANT
     Dosage: POSTOPERATIVELY
  3. MYCOPHENOLATE MOFETIL [Concomitant]
     Indication: LUNG TRANSPLANT
     Dosage: POSTOPERATIVELY
  4. PREDNISONE [Concomitant]
     Indication: LUNG TRANSPLANT
     Dosage: POSTOPERATIVELY
  5. VORICONAZOLE [Concomitant]
     Indication: ANTIBIOTIC PROPHYLAXIS
  6. VALGANCICLOVIR [Concomitant]
     Indication: ANTIBIOTIC PROPHYLAXIS
  7. TRIMETHOPRIM + SULFAMETHOXAZOLE [Concomitant]
     Indication: ANTIBIOTIC PROPHYLAXIS

REACTIONS (12)
  - ACUTE PRERENAL FAILURE [None]
  - ASCITES [None]
  - GRAVITATIONAL OEDEMA [None]
  - JUGULAR VEIN DISTENSION [None]
  - OEDEMA PERIPHERAL [None]
  - PERICARDIAL EFFUSION [None]
  - PERICARDITIS MYCOPLASMAL [None]
  - PLEURAL EFFUSION [None]
  - PSEUDOMONAS INFECTION [None]
  - RESPIRATORY FAILURE [None]
  - STREPTOCOCCAL INFECTION [None]
  - URINE OUTPUT DECREASED [None]
